FAERS Safety Report 20374593 (Version 3)
Quarter: 2022Q2

REPORT INFORMATION
  Report Type: Spontaneous
  Country: CZ (occurrence: CZ)
  Receive Date: 20220125
  Receipt Date: 20220617
  Transmission Date: 20220720
  Serious: Yes (Other)
  Sender: FDA-Public Use
  Company Number: CZ-PFIZER INC-202101487439

PATIENT
  Age: 77 Year
  Sex: Male

DRUGS (14)
  1. GABAPENTIN [Suspect]
     Active Substance: GABAPENTIN
     Dosage: 1 DF, 3X/DAY (ONE TABLET IN THE MORNING, ONE AT NOON, ONE IN THE EVENING)
  2. LEVETIRACETAM [Suspect]
     Active Substance: LEVETIRACETAM
     Dosage: 1 DF, 2X/DAY (ONE IN THE MORNING, ONE IN THE EVENING)
  3. DESMOPRESSIN [Concomitant]
     Active Substance: DESMOPRESSIN
     Dosage: 60 UG, 1X/DAY (IN THE EVENING)
  4. SOLIFENACIN [Concomitant]
     Active Substance: SOLIFENACIN
     Dosage: 10 MG, 1X/DAY (IN THE MORNING)
  5. DARIFENACIN [Concomitant]
     Active Substance: DARIFENACIN
     Dosage: 15 MG, 1X/DAY (IN THE MORNING)
  6. BISOPROLOL [Concomitant]
     Active Substance: BISOPROLOL
     Dosage: 5 MG, 1X/DAY ( IN THE MORNING)
  7. PERINDOPRIL [Concomitant]
     Active Substance: PERINDOPRIL
     Dosage: 4 MG, 1X/DAY(IN THE MORNING)
  8. SPIRONOLACTONE [Concomitant]
     Active Substance: SPIRONOLACTONE
     Dosage: 25 MG, 1X/DAY (IN THE MORNING)
  9. LERCANIDIPINE [Concomitant]
     Active Substance: LERCANIDIPINE
     Dosage: 20 MG, 1X/DAY (IN THE EVENING)
  10. OMEPRAZOLE [Concomitant]
     Active Substance: OMEPRAZOLE
     Dosage: 20 MG, 1X/DAY (IN THE MORNING)
  11. ATORVASTATIN [Concomitant]
     Active Substance: ATORVASTATIN
     Dosage: 15 MG, 1X/DAY (IN THE EVENING)
  12. ASPIRIN [Concomitant]
     Active Substance: ASPIRIN
     Dosage: 100 MG, 1X/DAY (IN THE MORNING)
  13. DOXAZOSIN [Concomitant]
     Active Substance: DOXAZOSIN MESYLATE
     Dosage: 4 MG, 1X/DAY (IN THE EVENING)
  14. SODIUM CHLORIDE [Concomitant]
     Active Substance: SODIUM CHLORIDE
     Dosage: 1000 MG, 2X/DAY (ONE IN THE MORNING, ONE IN THE EVENING)

REACTIONS (1)
  - Inappropriate antidiuretic hormone secretion [Recovered/Resolved]
